FAERS Safety Report 6766274-7 (Version None)
Quarter: 2010Q2

REPORT INFORMATION
  Report Type: 
  Country: None (occurrence: None)
  Receive Date: 20100611
  Receipt Date: 20100601
  Transmission Date: 20101027
  Serious: Yes (Hospitalization)
  Sender: FDA-Public Use
  Company Number: US-SANOFI-AVENTIS-2010SA031757

PATIENT
  Age: 59 Year
  Sex: Male

DRUGS (8)
  1. MULTAQ [Suspect]
     Indication: ATRIAL FIBRILLATION
     Route: 048
     Dates: start: 20100526
  2. VERAPAMIL [Concomitant]
  3. VYTORIN [Concomitant]
  4. LASIX [Concomitant]
  5. POTASSIUM [Concomitant]
  6. OMEPRAZOLE [Concomitant]
  7. METFORMIN [Concomitant]
  8. COUMADIN [Concomitant]

REACTIONS (2)
  - CARDIAC ARREST [None]
  - EJECTION FRACTION DECREASED [None]
